FAERS Safety Report 7119366-7 (Version None)
Quarter: 2010Q4

REPORT INFORMATION
  Report Type: 
  Country: None (occurrence: None)
  Receive Date: 20101123
  Receipt Date: 20101116
  Transmission Date: 20110411
  Serious: Yes (Death, Life-Threatening, Other)
  Sender: FDA-Public Use
  Company Number: FR-MEDIMMUNE-MEDI-0010230

PATIENT
  Sex: Male
  Weight: 4.12 kg

DRUGS (3)
  1. SYNAGIS [Suspect]
     Route: 030
     Dates: start: 20091114, end: 20091114
  2. SYNAGIS [Suspect]
     Route: 030
     Dates: start: 20091208, end: 20091208
  3. ACETYLSALICYLIC ACID [Concomitant]
     Route: 048

REACTIONS (11)
  - ABDOMINAL DISTENSION [None]
  - ANASTOMOTIC COMPLICATION [None]
  - BRADYCARDIA [None]
  - CARDIO-RESPIRATORY ARREST [None]
  - COMA [None]
  - CRYING [None]
  - HYPOTONIA [None]
  - MITRAL VALVE INCOMPETENCE [None]
  - PERIPHERAL COLDNESS [None]
  - SHOCK [None]
  - UNRESPONSIVE TO STIMULI [None]
